FAERS Safety Report 20145984 (Version 3)
Quarter: 2023Q1

REPORT INFORMATION
  Report Type: Report from Study
  Country: CA (occurrence: CA)
  Receive Date: 20211203
  Receipt Date: 20230201
  Transmission Date: 20230417
  Serious: Yes (Other)
  Sender: FDA-Public Use
  Company Number: CA-TAKEDA-2020TUS026389

PATIENT
  Age: 33 Year
  Sex: Female

DRUGS (9)
  1. VEDOLIZUMAB [Suspect]
     Active Substance: VEDOLIZUMAB
     Indication: Colitis ulcerative
     Dosage: 300 MILLIGRAM
     Route: 042
     Dates: start: 20200110
  2. VEDOLIZUMAB [Suspect]
     Active Substance: VEDOLIZUMAB
     Dosage: 300 MILLIGRAM, Q6WEEKS
     Route: 042
     Dates: start: 20200727
  3. VEDOLIZUMAB [Suspect]
     Active Substance: VEDOLIZUMAB
     Dosage: 300 MILLIGRAM, Q4WEEKS
     Route: 042
     Dates: start: 20211201
  4. VEDOLIZUMAB [Suspect]
     Active Substance: VEDOLIZUMAB
     Dosage: 300 MILLIGRAM, Q4WEEKS
     Route: 042
  5. VEDOLIZUMAB [Suspect]
     Active Substance: VEDOLIZUMAB
     Dosage: 300 MILLIGRAM, Q4WEEKS
     Route: 042
  6. FRAGMIN [Concomitant]
     Active Substance: DALTEPARIN SODIUM
     Dosage: UNK
  7. PREDNISONE [Concomitant]
     Active Substance: PREDNISONE
     Dosage: UNK
  8. BUDESONIDE [Concomitant]
     Active Substance: BUDESONIDE
     Dosage: UNK
     Dates: start: 20220124
  9. HEPARIN [Concomitant]
     Active Substance: HEPARIN SODIUM
     Dosage: UNK

REACTIONS (3)
  - Colitis ulcerative [Unknown]
  - Device occlusion [Unknown]
  - Off label use [Unknown]

NARRATIVE: CASE EVENT DATE: 20200727
